FAERS Safety Report 8387308-2 (Version None)
Quarter: 2012Q2

REPORT INFORMATION
  Report Type: 
  Country: None (occurrence: None)
  Receive Date: 20120525
  Receipt Date: 20120522
  Transmission Date: 20120825
  Serious: Yes (Hospitalization)
  Sender: FDA-Public Use
  Company Number: US-ROCHE-1071592

PATIENT
  Sex: Male
  Weight: 77.18 kg

DRUGS (1)
  1. AVASTIN [Suspect]
     Indication: GLIOBLASTOMA
     Route: 042

REACTIONS (4)
  - ANAL FISTULA [None]
  - RASH [None]
  - RECTAL HAEMORRHAGE [None]
  - HAEMORRHOIDS [None]
